FAERS Safety Report 4581509-7 (Version None)
Quarter: 2005Q1

REPORT INFORMATION
  Report Type: 
  Country: None (occurrence: None)
  Receive Date: 20050214
  Receipt Date: 20041105
  Transmission Date: 20050727
  Serious: No
  Sender: FDA-Public Use
  Company Number: US-GLAXOSMITHKLINE-A0532839A

PATIENT
  Age: 47 Year
  Sex: Female
  Weight: 48.2 kg

DRUGS (4)
  1. LAMICTAL [Suspect]
     Indication: BIPOLAR DISORDER
     Dosage: 100MG THREE TIMES PER DAY
     Route: 048
     Dates: start: 20030401
  2. LITHIUM [Concomitant]
     Indication: BIPOLAR DISORDER
     Dosage: 150MG TWICE PER DAY
     Route: 048
     Dates: start: 19980101
  3. ZOLOFT [Concomitant]
     Indication: BIPOLAR DISORDER
     Dosage: 200MG PER DAY
     Route: 048
     Dates: start: 19970101
  4. KLONOPIN [Concomitant]
     Dosage: .5MG AT NIGHT

REACTIONS (1)
  - HYPERCHOLESTEROLAEMIA [None]
